FAERS Safety Report 20664431 (Version 1)
Quarter: 2022Q2

REPORT INFORMATION
  Report Type: Spontaneous
  Country: JP (occurrence: None)
  Receive Date: 20220401
  Receipt Date: 20220401
  Transmission Date: 20220721
  Serious: Yes (Hospitalization, Other)
  Sender: FDA-Public Use
  Company Number: 2022A129353

PATIENT
  Age: 74 Year
  Sex: Male

DRUGS (4)
  1. DURVALUMAB [Suspect]
     Active Substance: DURVALUMAB
     Indication: Neuroendocrine carcinoma
     Dosage: EVERY 2 WEEKS
     Route: 042
     Dates: start: 201904
  2. DURVALUMAB [Suspect]
     Active Substance: DURVALUMAB
     Indication: Neuroendocrine carcinoma
     Route: 042
  3. CISPLATIN\ETOPOSIDE [Concomitant]
     Active Substance: CISPLATIN\ETOPOSIDE
     Route: 065
  4. ETOPOSIDE [Concomitant]
     Active Substance: ETOPOSIDE
     Route: 065

REACTIONS (1)
  - Tumour pseudoprogression [Recovered/Resolved]
